FAERS Safety Report 9146810 (Version 1)
Quarter: 2013Q1

REPORT INFORMATION
  Report Type: Spontaneous
  Country: GR (occurrence: GR)
  Receive Date: 20130307
  Receipt Date: 20130307
  Transmission Date: 20140127
  Serious: Yes (Life-Threatening, Hospitalization, Other)
  Sender: FDA-Public Use
  Company Number: GR-ROCHE-1159322

PATIENT
  Age: 55 Year
  Sex: Male
  Weight: 90 kg

DRUGS (10)
  1. TOCILIZUMAB [Suspect]
     Indication: RHEUMATOID ARTHRITIS
     Route: 042
     Dates: start: 20101005
  2. TOCILIZUMAB [Suspect]
     Route: 042
     Dates: start: 20120828
  3. TOCILIZUMAB [Suspect]
     Route: 042
     Dates: start: 20121008
  4. TOCILIZUMAB [Suspect]
     Route: 042
     Dates: start: 20121115
  5. TOCILIZUMAB [Suspect]
     Route: 042
     Dates: start: 20130114
  6. FOLIC ACID [Suspect]
     Indication: RHEUMATOID ARTHRITIS
     Route: 065
  7. HYDROXYCHLOROQUINE [Suspect]
     Indication: ARTHRITIS
     Route: 065
  8. METHOTREXATE [Concomitant]
     Indication: RHEUMATOID ARTHRITIS
     Route: 065
  9. METHOTREXATE [Concomitant]
     Route: 058
  10. PROTON PUMP INHIBITOR (UNK INGREDIENTS) [Concomitant]
     Route: 048

REACTIONS (3)
  - Transaminases increased [Recovered/Resolved]
  - Gastric perforation [Recovered/Resolved]
  - Upper respiratory tract infection [Unknown]
